FAERS Safety Report 5527194-9 (Version None)
Quarter: 2007Q4

REPORT INFORMATION
  Report Type: 
  Country: None (occurrence: None)
  Receive Date: 20071121
  Receipt Date: 20071009
  Transmission Date: 20080405
  Serious: Yes (Death, Hospitalization, Other)
  Sender: FDA-Public Use
  Company Number: 2007001898

PATIENT
  Age: 60 Year
  Sex: Male

DRUGS (3)
  1. TARCEVA [Suspect]
     Indication: LUNG NEOPLASM MALIGNANT
     Dosage: (150 MG), ORAL
     Route: 048
  2. PHYTONADIONE [Suspect]
  3. WARFARIN SODIUM [Concomitant]

REACTIONS (8)
  - BRONCHOPNEUMONIA [None]
  - INTERNATIONAL NORMALISED RATIO INCREASED [None]
  - INTERSTITIAL LUNG DISEASE [None]
  - PULMONARY HAEMORRHAGE [None]
  - PULMONARY INFARCTION [None]
  - PULMONARY OEDEMA [None]
  - RASH MACULO-PAPULAR [None]
  - RESPIRATORY FAILURE [None]
